FAERS Safety Report 10101678 (Version 1)
Quarter: 2014Q2

REPORT INFORMATION
  Report Type: Spontaneous
  Country: JP (occurrence: JP)
  Receive Date: 20140424
  Receipt Date: 20140424
  Transmission Date: 20141212
  Serious: Yes (Other)
  Sender: FDA-Public Use
  Company Number: JP-TEVA-475721ISR

PATIENT
  Sex: 0

DRUGS (1)
  1. FUROSEMIDE TABLET 20 ^TAIYO^ ,TAB,20MG [Suspect]
     Route: 048

REACTIONS (2)
  - Haematemesis [Unknown]
  - Asthenia [Unknown]
